FAERS Safety Report 14665265 (Version 6)
Quarter: 2021Q2

REPORT INFORMATION
  Report Type: Spontaneous
  Country: US (occurrence: US)
  Receive Date: 20180321
  Receipt Date: 20210517
  Transmission Date: 20210716
  Serious: Yes (Other)
  Sender: FDA-Public Use
  Company Number: US-ASTRAZENECA-2018SE33514

PATIENT
  Age: 66 Year
  Sex: Male
  Weight: 102.5 kg

DRUGS (109)
  1. BYDUREON [Suspect]
     Active Substance: EXENATIDE
     Indication: DIABETES MELLITUS
     Route: 058
     Dates: start: 201502
  2. PREVACID [Suspect]
     Active Substance: LANSOPRAZOLE
     Indication: GASTROOESOPHAGEAL REFLUX DISEASE
     Dosage: 30 MG
     Route: 065
     Dates: start: 20070305, end: 20091204
  3. ASPIRIN. [Concomitant]
     Active Substance: ASPIRIN
     Indication: CARDIAC DISORDER
     Route: 048
     Dates: start: 2003
  4. VITAMIN E [Concomitant]
     Active Substance: .ALPHA.-TOCOPHEROL
     Indication: VITAMIN E DEFICIENCY
     Route: 065
     Dates: start: 2003
  5. ZETIA [Concomitant]
     Active Substance: EZETIMIBE
     Indication: BLOOD CHOLESTEROL INCREASED
     Route: 048
  6. NITROQUICK [Concomitant]
     Active Substance: NITROGLYCERIN
     Dates: start: 20010404
  7. LORAZEPAM. [Concomitant]
     Active Substance: LORAZEPAM
  8. REZULIN [Concomitant]
     Active Substance: TROGLITAZONE
     Dates: start: 19990108
  9. PANTANOL [Concomitant]
     Dates: start: 19990801
  10. HYDROXYZINE [Concomitant]
     Active Substance: HYDROXYZINE HYDROCHLORIDE
  11. ENALAPRIL [Concomitant]
     Active Substance: ENALAPRIL
  12. KLOR [Concomitant]
  13. FERROUS SUL [Concomitant]
  14. DOXAZOSIN [Concomitant]
     Active Substance: DOXAZOSIN MESYLATE
  15. AMOXICILLIN. [Concomitant]
     Active Substance: AMOXICILLIN
  16. CICLOPIROX. [Concomitant]
     Active Substance: CICLOPIROX
  17. PATANASE [Concomitant]
     Active Substance: OLOPATADINE HYDROCHLORIDE
  18. METOPROLOL SUCCINATE. [Concomitant]
     Active Substance: METOPROLOL SUCCINATE
     Route: 048
  19. NASONEX [Concomitant]
     Active Substance: MOMETASONE FUROATE
     Dosage: 50 MCG/ACT SUSP, TWICE A DAY
  20. CARDIZEM CD [Concomitant]
     Active Substance: DILTIAZEM HYDROCHLORIDE
     Route: 048
  21. PREVACID [Suspect]
     Active Substance: LANSOPRAZOLE
     Indication: GASTROOESOPHAGEAL REFLUX DISEASE
     Route: 065
     Dates: start: 1999, end: 2015
  22. FUROSEMIDE. [Concomitant]
     Active Substance: FUROSEMIDE
     Indication: FLUID RETENTION
     Route: 065
     Dates: start: 20001124
  23. SEREVENT DISKUS [Concomitant]
     Active Substance: SALMETEROL XINAFOATE
     Dates: start: 19990801
  24. KERLONE [Concomitant]
     Active Substance: BETAXOLOL HYDROCHLORIDE
     Dates: start: 19990801
  25. ACULAR [Concomitant]
     Active Substance: KETOROLAC TROMETHAMINE
     Dates: start: 19990224
  26. FLOVENT [Concomitant]
     Active Substance: FLUTICASONE PROPIONATE
  27. PENLAC [Concomitant]
     Active Substance: CICLOPIROX
  28. NITROGLYCER [Concomitant]
  29. AZELASTINE. [Concomitant]
     Active Substance: AZELASTINE HYDROCHLORIDE
  30. ULORIC [Concomitant]
     Active Substance: FEBUXOSTAT
  31. ONGLYZA [Concomitant]
     Active Substance: SAXAGLIPTIN HYDROCHLORIDE
  32. ALBUTEROL. [Concomitant]
     Active Substance: ALBUTEROL
     Dosage: 90MCG AERO?PRN ?AS NEEDED
  33. TRULICITY [Concomitant]
     Active Substance: DULAGLUTIDE
  34. LIPITOR [Concomitant]
     Active Substance: ATORVASTATIN CALCIUM
     Indication: BLOOD CHOLESTEROL INCREASED
     Dosage: QHS ? 1 EVERY BEDTIME
     Route: 048
     Dates: start: 2000
  35. MELOXICAM. [Concomitant]
     Active Substance: MELOXICAM
     Indication: INFLAMMATION
     Route: 065
     Dates: start: 2007, end: 2010
  36. POTASSIUM CHLORIDE. [Concomitant]
     Active Substance: POTASSIUM CHLORIDE
  37. LEVAQUIN [Concomitant]
     Active Substance: LEVOFLOXACIN
     Dates: start: 20031125
  38. CYCLOCORT [Concomitant]
     Active Substance: AMCINONIDE
  39. ATROVENT [Concomitant]
     Active Substance: IPRATROPIUM BROMIDE
  40. INDOMETHACIN. [Concomitant]
     Active Substance: INDOMETHACIN
  41. CLARITHROMYCIN. [Concomitant]
     Active Substance: CLARITHROMYCIN
  42. TAMSULOSIN [Concomitant]
     Active Substance: TAMSULOSIN
  43. BENZONATATE. [Concomitant]
     Active Substance: BENZONATATE
  44. NIACIN. [Concomitant]
     Active Substance: NIACIN
  45. VENTOLIN [Concomitant]
     Active Substance: ALBUTEROL SULFATE
  46. FISH OIL [Concomitant]
     Active Substance: FISH OIL
     Indication: CARDIAC DISORDER
     Route: 048
     Dates: start: 2003
  47. METFORMIN HYDROCHLORIDE. [Concomitant]
     Active Substance: METFORMIN HYDROCHLORIDE
     Indication: DIABETES MELLITUS
     Route: 048
     Dates: start: 2006
  48. GLUCOTROL [Concomitant]
     Active Substance: GLIPIZIDE
     Indication: DIABETES MELLITUS
     Route: 048
     Dates: start: 19990801
  49. NITROQUICK [Concomitant]
     Active Substance: NITROGLYCERIN
     Dosage: NITROSTAT?PRN ?AS NEEDED
     Route: 060
  50. DEMADEX [Concomitant]
     Active Substance: TORSEMIDE
  51. ACCUPRIL [Concomitant]
     Active Substance: QUINAPRIL HYDROCHLORIDE
     Dates: start: 19990108
  52. ULTRAM [Concomitant]
     Active Substance: TRAMADOL HYDROCHLORIDE
     Dates: start: 19990208
  53. VIAGRA [Concomitant]
     Active Substance: SILDENAFIL CITRATE
     Dates: start: 19991108
  54. RALAFEN [Concomitant]
     Dates: start: 19990801
  55. ZOCOR [Concomitant]
     Active Substance: SIMVASTATIN
     Dates: start: 19990108
  56. SULINDAC. [Concomitant]
     Active Substance: SULINDAC
     Dates: start: 19990208
  57. ZOTO [Concomitant]
     Dates: start: 19991105
  58. COLCHICINE. [Concomitant]
     Active Substance: COLCHICINE
  59. BYETTA [Concomitant]
     Active Substance: EXENATIDE
  60. OXISTAT [Concomitant]
     Active Substance: OXICONAZOLE NITRATE
  61. TERBINAFINE. [Concomitant]
     Active Substance: TERBINAFINE
  62. PRILOSEC [Suspect]
     Active Substance: OMEPRAZOLE MAGNESIUM
     Indication: GASTROOESOPHAGEAL REFLUX DISEASE
     Dosage: GENERIC 40 MG?QHS ?1 EVERY BEDTIME
     Route: 048
  63. DALIRESP [Concomitant]
     Active Substance: ROFLUMILAST
     Indication: CHRONIC OBSTRUCTIVE PULMONARY DISEASE
     Route: 048
     Dates: start: 20150331
  64. ATORVASTATIN [Concomitant]
     Active Substance: ATORVASTATIN
     Indication: BLOOD CHOLESTEROL INCREASED
     Route: 065
     Dates: start: 2010
  65. LANTUS [Concomitant]
     Active Substance: INSULIN GLARGINE
     Indication: DIABETES MELLITUS
     Route: 065
     Dates: start: 2015
  66. VEETIDS [Concomitant]
     Active Substance: PENICILLIN V POTASSIUM
     Dates: start: 20001212
  67. RHINOCORT [Concomitant]
     Active Substance: BUDESONIDE
     Dates: start: 20031125
  68. ACCOLATE [Concomitant]
     Active Substance: ZAFIRLUKAST
     Dates: start: 19990208
  69. FLONASE [Concomitant]
     Active Substance: FLUTICASONE PROPIONATE
     Dates: start: 19990801
  70. BETAMETH [Concomitant]
  71. CROMOLYN [Concomitant]
     Active Substance: CROMOLYN
  72. NAFTIN [Concomitant]
     Active Substance: NAFTIFINE HYDROCHLORIDE
  73. ADVAIR DISKU [Concomitant]
  74. COLCRYS [Concomitant]
     Active Substance: COLCHICINE
  75. FENOFIB [Concomitant]
  76. SYMBICORT [Concomitant]
     Active Substance: BUDESONIDE\FORMOTEROL FUMARATE DIHYDRATE
     Dosage: 160?4.5MCG/ACT INHALATION AEROSOL TAKE AS DIRECTED TUD
  77. NEXIUM [Suspect]
     Active Substance: ESOMEPRAZOLE MAGNESIUM
     Indication: GASTROOESOPHAGEAL REFLUX DISEASE
     Route: 048
     Dates: start: 19990102, end: 2015
  78. NEXIUM [Suspect]
     Active Substance: ESOMEPRAZOLE MAGNESIUM
     Indication: GASTROOESOPHAGEAL REFLUX DISEASE
     Dosage: 40 MG
     Route: 048
     Dates: start: 20060206, end: 20110129
  79. NEXIUM [Suspect]
     Active Substance: ESOMEPRAZOLE MAGNESIUM
     Indication: GASTROOESOPHAGEAL REFLUX DISEASE
     Dosage: 40 MG
     Route: 048
     Dates: start: 20121119
  80. PRILOSEC [Suspect]
     Active Substance: OMEPRAZOLE MAGNESIUM
     Indication: GASTROOESOPHAGEAL REFLUX DISEASE
     Dosage: GENERIC 40 MG
     Route: 048
     Dates: start: 20110715, end: 20151228
  81. TRADJENTA [Concomitant]
     Active Substance: LINAGLIPTIN
     Indication: DIABETES MELLITUS
     Route: 048
     Dates: start: 2014
  82. ALLOPURINOL. [Concomitant]
     Active Substance: ALLOPURINOL
     Route: 048
  83. OXYCOD [Concomitant]
     Dates: start: 20031125
  84. PROAIR HFA [Concomitant]
     Active Substance: ALBUTEROL SULFATE
     Dates: start: 20150404
  85. CARDURA [Concomitant]
     Active Substance: DOXAZOSIN MESYLATE
     Dosage: S
     Route: 048
     Dates: start: 19990208
  86. GLUCOPHAGE [Concomitant]
     Active Substance: METFORMIN HYDROCHLORIDE
     Dates: start: 19990201
  87. BIAXIN [Concomitant]
     Active Substance: CLARITHROMYCIN
     Dates: start: 19990701
  88. ALLAGRA [Concomitant]
     Dates: start: 19990503
  89. NIASPAN [Concomitant]
     Active Substance: NIACIN
     Dates: start: 20000706
  90. AUGMENTIN [Concomitant]
     Active Substance: AMOXICILLIN\CLAVULANATE POTASSIUM
  91. SPIRIVA [Concomitant]
     Active Substance: TIOTROPIUM BROMIDE MONOHYDRATE
  92. SILVER SULFA [Concomitant]
  93. XANAX [Concomitant]
     Active Substance: ALPRAZOLAM
     Route: 048
  94. PRILOSEC [Suspect]
     Active Substance: OMEPRAZOLE MAGNESIUM
     Indication: GASTROOESOPHAGEAL REFLUX DISEASE
     Dosage: 20 MG
     Route: 048
     Dates: start: 19990208, end: 20000505
  95. SPIRIVA [Concomitant]
     Active Substance: TIOTROPIUM BROMIDE MONOHYDRATE
     Route: 065
  96. LODINE [Concomitant]
     Active Substance: ETODOLAC
     Dates: start: 19990801
  97. ACULAR [Concomitant]
     Active Substance: KETOROLAC TROMETHAMINE
     Dates: start: 19990224
  98. LEXAPRO [Concomitant]
     Active Substance: ESCITALOPRAM OXALATE
  99. METHYLPRED [Concomitant]
     Active Substance: METHYLPREDNISOLONE
  100. ZYRTEC [Concomitant]
     Active Substance: CETIRIZINE HYDROCHLORIDE
  101. LEVITRA [Concomitant]
     Active Substance: VARDENAFIL HYDROCHLORIDE
  102. INSULIN [Concomitant]
     Active Substance: INSULIN NOS
  103. MONTELUKAST [Concomitant]
     Active Substance: MONTELUKAST SODIUM
  104. HUMULIN NOS [Concomitant]
     Active Substance: INSULIN HUMAN
  105. ELIQUIS [Concomitant]
     Active Substance: APIXABAN
     Route: 048
  106. MEGA MULTIVITAMIN FOR MEN [Concomitant]
     Route: 048
  107. WELCHOL [Concomitant]
     Active Substance: COLESEVELAM HYDROCHLORIDE
  108. LANTUS [Concomitant]
     Active Substance: INSULIN GLARGINE
  109. PROVENTIL HFA [Concomitant]
     Active Substance: ALBUTEROL SULFATE
     Dosage: 1.25MG 3 TIMES A DAY

REACTIONS (6)
  - Chronic kidney disease [Not Recovered/Not Resolved]
  - Device issue [Unknown]
  - Chronic kidney disease-mineral and bone disorder [Unknown]
  - Renal failure [Unknown]
  - Nephrogenic anaemia [Unknown]
  - Decreased appetite [Not Recovered/Not Resolved]

NARRATIVE: CASE EVENT DATE: 2008
